FAERS Safety Report 9232659 (Version 2)
Quarter: 2013Q2

REPORT INFORMATION
  Report Type: Other
  Country: US (occurrence: US)
  Receive Date: 20130416
  Receipt Date: 20130605
  Transmission Date: 20140414
  Serious: Yes (Death, Other)
  Sender: FDA-Public Use
  Company Number: US-SHIRE-ALL1-2013-02363

PATIENT
  Age: 72 Year
  Sex: Female
  Weight: 68 kg

DRUGS (19)
  1. FOSRENOL [Suspect]
     Indication: HYPERPHOSPHATAEMIA
     Dosage: 1000 MG, 3X/DAY:TID (WITH MEALS)
     Route: 048
     Dates: start: 20120403
  2. FOSRENOL [Suspect]
     Indication: RENAL FAILURE CHRONIC
     Dosage: 500 MG, 1X/DAY:QD (WITH SNACK)
     Route: 048
     Dates: start: 20120403
  3. AMLODIPINE [Concomitant]
     Indication: PRODUCT USED FOR UNKNOWN INDICATION
     Dosage: 5 MG, 1X/DAY:QD (HOLD IF SYS BP {130)
     Route: 048
     Dates: start: 20130130
  4. AMLODIPINE [Concomitant]
     Dosage: 2.5 MG, UNKNOWN (NON-DIALYSIS DAYS (NDD))
     Route: 048
     Dates: start: 20101111, end: 20130130
  5. ASA [Concomitant]
     Indication: PRODUCT USED FOR UNKNOWN INDICATION
     Dosage: 325 MG, 1X/DAY:QD
     Route: 048
     Dates: start: 20070424
  6. FUROSEMIDE [Concomitant]
     Indication: PRODUCT USED FOR UNKNOWN INDICATION
     Dosage: 40 MG, 1X/DAY:QD
     Route: 048
     Dates: start: 20110629
  7. HUMULIN I [Concomitant]
     Indication: PRODUCT USED FOR UNKNOWN INDICATION
     Dosage: 10 IU, 1X/DAY:QD (70/30 10U QAM)
     Route: 065
     Dates: start: 20070501
  8. NPH                                /00030513/ [Concomitant]
     Indication: PRODUCT USED FOR UNKNOWN INDICATION
     Dosage: 8 IU, 1X/DAY:QD (NPH 8 UNITS SQ Q HS PRN)
     Route: 058
     Dates: start: 20080417
  9. IMDUR [Concomitant]
     Indication: PRODUCT USED FOR UNKNOWN INDICATION
     Dosage: 30 MG, 1X/DAY:QD
     Route: 048
     Dates: start: 20110629
  10. LIPITOR [Concomitant]
     Indication: PRODUCT USED FOR UNKNOWN INDICATION
     Dosage: 80 MG, 1X/DAY:QD (80 MG TABLET 1 PO QD)
     Route: 048
     Dates: start: 20080605
  11. LOPRESSOR [Concomitant]
     Indication: PRODUCT USED FOR UNKNOWN INDICATION
     Dosage: 25 MG, 1X/DAY:QD (25 MG PO DAILY)
     Route: 048
     Dates: start: 20110629
  12. LOPRESSOR [Concomitant]
     Dosage: 12.5 MG, 1X/DAY:QD (12.5 MG QAM)
     Route: 065
     Dates: start: 20070522, end: 20071220
  13. LOPRESSOR [Concomitant]
     Dosage: 50 MG, 1X/DAY:QD (50 MG QAM)
     Route: 065
     Dates: start: 20071213, end: 20080326
  14. LOPRESSOR [Concomitant]
     Dosage: 25 MG, 1X/DAY:QD (25 MG PO QAM)
     Route: 048
     Dates: start: 20080326, end: 20080821
  15. LOPRESSOR [Concomitant]
     Dosage: 25 MG, OTHER (25 MG PO NDD ONLY)
     Route: 048
     Dates: start: 20080821, end: 20110629
  16. NEPHROCAPS                         /01801401/ [Concomitant]
     Indication: PRODUCT USED FOR UNKNOWN INDICATION
     Dosage: 1 DF, 1X/DAY:QD (1 CAP A DAY)
     Route: 065
     Dates: start: 20090213
  17. PRILOSEC                           /00661201/ [Concomitant]
     Indication: PRODUCT USED FOR UNKNOWN INDICATION
     Dosage: 20 MG, 1X/DAY:QD
     Route: 065
     Dates: start: 20121011
  18. SENSIPAR [Concomitant]
     Indication: HYPERPARATHYROIDISM
     Dosage: 30 MG, 1X/DAY:QD (30 MG PO QD)
     Route: 048
     Dates: start: 20081113
  19. SYNTHROID [Concomitant]
     Indication: PRODUCT USED FOR UNKNOWN INDICATION
     Dosage: 125 ?G, 1X/DAY:QD (125 MCG 1 PO QHS)
     Dates: start: 20070501

REACTIONS (1)
  - Myocardial infarction [Fatal]
